FAERS Safety Report 23414144 (Version 3)
Quarter: 2024Q3

REPORT INFORMATION
  Report Type: Spontaneous
  Country: US (occurrence: US)
  Receive Date: 20240117
  Receipt Date: 20240703
  Transmission Date: 20241017
  Serious: Yes (Hospitalization, Other)
  Sender: BRISTOL MYERS SQUIBB
  Company Number: US-BRISTOL-MYERS SQUIBB COMPANY-2024-008703

PATIENT
  Age: 63 Year
  Sex: Female

DRUGS (2)
  1. ORENCIA [Suspect]
     Active Substance: ABATACEPT
     Indication: Rheumatoid arthritis
     Dosage: EVERY WEEK
     Route: 058
     Dates: start: 202311
  2. ORENCIA [Suspect]
     Active Substance: ABATACEPT
     Dosage: EVERY WEEK
     Route: 058
     Dates: start: 202311

REACTIONS (4)
  - Urinary tract infection [Unknown]
  - Escherichia bacteraemia [Unknown]
  - Joint swelling [Unknown]
  - Arthralgia [Unknown]

NARRATIVE: CASE EVENT DATE: 20240501
